FAERS Safety Report 7983690-6 (Version None)
Quarter: 2011Q4

REPORT INFORMATION
  Report Type: 
  Country: None (occurrence: None)
  Receive Date: 20111215
  Receipt Date: 20111213
  Transmission Date: 20120403
  Serious: Yes (Hospitalization)
  Sender: FDA-Public Use
  Company Number: US-MERCK-1110USA00793

PATIENT
  Age: 67 Year
  Sex: Female

DRUGS (6)
  1. FOSAMAX [Suspect]
     Indication: OSTEOPENIA
     Route: 048
     Dates: start: 20040601, end: 20080101
  2. DIOVAN [Concomitant]
     Route: 065
     Dates: start: 20040101, end: 20061101
  3. PLAVIX [Concomitant]
     Indication: BLOOD CHOLESTEROL INCREASED
     Route: 065
     Dates: start: 20041104
  4. CRESTOR [Concomitant]
     Indication: BLOOD CHOLESTEROL INCREASED
     Route: 065
     Dates: end: 20090101
  5. FOSAMAX [Suspect]
     Route: 048
     Dates: start: 20080101, end: 20090428
  6. VERAPAMIL [Concomitant]
     Indication: HYPERTENSION
     Route: 065
     Dates: start: 20040601

REACTIONS (3)
  - GASTROOESOPHAGEAL REFLUX DISEASE [None]
  - ANGIOPATHY [None]
  - FEMUR FRACTURE [None]
